FAERS Safety Report 12286227 (Version 2)
Quarter: 2016Q2

REPORT INFORMATION
  Report Type: Spontaneous
  Country: US (occurrence: US)
  Receive Date: 20160420
  Receipt Date: 20160627
  Transmission Date: 20160815
  Serious: Yes (Hospitalization)
  Sender: FDA-Public Use
  Company Number: US-PFIZER INC-2016176847

PATIENT
  Age: 56 Year
  Sex: Female
  Weight: 50 kg

DRUGS (18)
  1. XELJANZ [Suspect]
     Active Substance: TOFACITINIB CITRATE
     Dosage: 10 MG, 2X/DAY
     Dates: start: 2016
  2. TRAZODONE [Concomitant]
     Active Substance: TRAZODONE HYDROCHLORIDE
     Indication: INSOMNIA
     Dosage: 100 MG, 1X/DAY, AT NIGHT
     Route: 048
  3. OMEGA 3 FISH OIL [Concomitant]
     Active Substance: FISH OIL\OMEGA-3 FATTY ACIDS
     Indication: CARDIAC DISORDER
  4. GLUCOSAMINE CHONDROITIN [Concomitant]
     Active Substance: CHONDROITIN SULFATE (BOVINE)\GLUCOSAMINE HYDROCHLORIDE
     Indication: ARTHROPATHY
     Dosage: 1500 MG, 2X/DAY
     Route: 048
  5. LEVOTHYROXINE. [Concomitant]
     Active Substance: LEVOTHYROXINE
     Indication: HYPOTHYROIDISM
     Dosage: 100 UG, 1X/DAY
     Route: 048
  6. NOVOLOG [Concomitant]
     Active Substance: INSULIN ASPART
     Indication: BLOOD GLUCOSE INCREASED
     Dosage: UNK UNK, 3X/DAY, ACCORDING TO HIGH SUGAR
  7. XELJANZ [Suspect]
     Active Substance: TOFACITINIB CITRATE
     Indication: RHEUMATOID ARTHRITIS
     Dosage: 5 MG, 2X/DAY
     Route: 048
     Dates: start: 201602
  8. OMEGA 3 FISH OIL [Concomitant]
     Active Substance: FISH OIL\OMEGA-3 FATTY ACIDS
     Indication: ARTHROPATHY
     Dosage: 2 DF, 1X/DAY
  9. BROMALINE [Concomitant]
     Indication: INFLAMMATION
     Dosage: 2 DF, 1X/DAY
     Route: 048
  10. FOLIC ACID. [Concomitant]
     Active Substance: FOLIC ACID
     Dosage: 1 MG, 3X/DAY
     Route: 048
  11. DIAZEPAM. [Concomitant]
     Active Substance: DIAZEPAM
     Indication: INSOMNIA
     Dosage: 5 MG, 2X/DAY, AT NIGHT AND WHEN SHE WAKES UP BETWEEN 2-3AM
     Route: 048
  12. PREDNISONE. [Concomitant]
     Active Substance: PREDNISONE
     Indication: RHEUMATOID ARTHRITIS
     Dosage: 5-10MG WHEN SHE HAS A FLARE
     Route: 048
  13. PREDNISONE. [Concomitant]
     Active Substance: PREDNISONE
     Dosage: 10 MG, UNK (AM-PM 1.5 DAYS, THEN 5 MG  2 DAY OR SO THEN OFF)
  14. EXCEDRIN MIGRAINE [Concomitant]
     Active Substance: ACETAMINOPHEN\ASPIRIN\CAFFEINE
     Dosage: 500 MG/130 MG/ 500MG, 2X/DAY, IN THE MORNING AND SOMETIMES LATER IN THE DAY
     Route: 048
  15. METHOTREXATE [Concomitant]
     Active Substance: METHOTREXATE
     Indication: RHEUMATOID ARTHRITIS
     Dosage: 1 ML, WEEKLY
  16. MULTIVITAMIN [Concomitant]
     Active Substance: VITAMINS
     Indication: VITAMIN SUPPLEMENTATION
     Dosage: UNK UNK, 1X/DAY
     Route: 048
  17. CALCIUM CITRATE WITH VITAMIN D3 [Concomitant]
     Indication: OSTEOPOROSIS
     Dosage: 2 DF, 1X/DAY
     Route: 048
  18. LANTUS [Concomitant]
     Active Substance: INSULIN GLARGINE
     Indication: DIABETES MELLITUS
     Dosage: UNK UNK, 1X/DAY, 15 UNITS IN THE MORNING

REACTIONS (4)
  - Fatigue [Not Recovered/Not Resolved]
  - Condition aggravated [Not Recovered/Not Resolved]
  - Insomnia [Not Recovered/Not Resolved]
  - Eyelid cyst [Not Recovered/Not Resolved]

NARRATIVE: CASE EVENT DATE: 20160323
